FAERS Safety Report 11857029 (Version 1)
Quarter: 2015Q4

REPORT INFORMATION
  Report Type: Spontaneous
  Country: FR (occurrence: FR)
  Receive Date: 20151221
  Receipt Date: 20151221
  Transmission Date: 20160305
  Serious: Yes (Hospitalization)
  Sender: FDA-Public Use
  Company Number: FR-TEVA-617852ISR

PATIENT
  Age: 20 Year
  Sex: Female

DRUGS (1)
  1. ANTADYS [Suspect]
     Active Substance: FLURBIPROFEN
     Indication: ABDOMINAL PAIN
     Route: 048
     Dates: start: 20150826, end: 20150902

REACTIONS (1)
  - Subileus [Recovering/Resolving]

NARRATIVE: CASE EVENT DATE: 20150911
